FAERS Safety Report 7534378-7 (Version None)
Quarter: 2011Q2

REPORT INFORMATION
  Report Type: 
  Country: None (occurrence: None)
  Receive Date: 20110608
  Receipt Date: 20110512
  Transmission Date: 20111010
  Serious: No
  Sender: FDA-Public Use
  Company Number: US-AMGEN-USASP2011024722

PATIENT
  Sex: Female

DRUGS (9)
  1. LIQUID CALCIUM                     /00751501/ [Concomitant]
     Dosage: 600 MG, UNK
  2. MULTIVITAMIN                       /00097801/ [Concomitant]
  3. DICLOFENAC SODIUM [Concomitant]
  4. PROLIA [Suspect]
     Indication: OSTEOPOROSIS POSTMENOPAUSAL
     Dosage: 60 MG, Q6MO
     Dates: start: 20101101
  5. LISINOPRIL [Concomitant]
  6. PROPRANOLOL [Concomitant]
     Dosage: UNK UNK, QD
  7. FLEXERIL [Concomitant]
     Dosage: UNK UNK, PRN
  8. POTASSIUM CHLORIDE [Concomitant]
  9. VITAMIN D [Concomitant]

REACTIONS (3)
  - CYSTITIS [None]
  - UNEVALUABLE EVENT [None]
  - PAIN [None]
